FAERS Safety Report 8860394 (Version 1)
Quarter: 2012Q4

REPORT INFORMATION
  Report Type: 
  Country: US (occurrence: US)
  Receive Date: 20121025
  Receipt Date: 20121025
  Transmission Date: 20130627
  Serious: Yes (Hospitalization, Other)
  Sender: FDA-Public Use
  Company Number: US-JNJFOC-20121006849

PATIENT
  Sex: Female
  Weight: 67.59 kg

DRUGS (7)
  1. DURAGESIC [Suspect]
     Indication: PAIN
     Route: 062
  2. DURAGESIC [Suspect]
     Indication: PAIN
     Route: 062
  3. DURAGESIC [Suspect]
     Indication: PAIN
     Route: 062
  4. DURAGESIC [Suspect]
     Indication: PAIN
     Route: 062
  5. DURAGESIC [Suspect]
     Indication: PAIN
     Route: 062
     Dates: start: 2010
  6. FENTANYL TRANSDERMAL SYSTEM [Suspect]
     Indication: PAIN
     Route: 062
     Dates: start: 201102, end: 201104
  7. DURAGESIC [Suspect]
     Indication: PAIN
     Route: 062
     Dates: start: 201104

REACTIONS (11)
  - Colon cancer [Recovered/Resolved]
  - Hernia [Unknown]
  - Finger deformity [Recovered/Resolved]
  - Foot deformity [Unknown]
  - Body height decreased [Not Recovered/Not Resolved]
  - Drug administered at inappropriate site [Unknown]
  - Drug effect decreased [Recovered/Resolved]
  - Product quality issue [Unknown]
  - Pain [Recovered/Resolved]
  - Drug ineffective [Not Recovered/Not Resolved]
  - Product quality issue [Unknown]
